FAERS Safety Report 4642071-3 (Version None)
Quarter: 2005Q2

REPORT INFORMATION
  Report Type: 
  Country: None (occurrence: None)
  Receive Date: 20050420
  Receipt Date: 20050404
  Transmission Date: 20051028
  Serious: Yes (Life-Threatening, Hospitalization, Disabling, Other)
  Sender: FDA-Public Use
  Company Number: JP_050205815

PATIENT
  Age: 58 Year
  Sex: Male
  Weight: 55 kg

DRUGS (12)
  1. GEMZAR [Suspect]
     Indication: BILE DUCT CANCER
     Dosage: 1500 MG OTHER
     Dates: start: 20041014, end: 20050130
  2. DECADRON [Concomitant]
  3. RINDERON (BETAMETHASONE DIPROPIONATE) [Concomitant]
  4. ZOFRAN [Concomitant]
  5. FOIPAN (CAMOSTAT MESILATE) [Concomitant]
  6. FAMOTIDINE [Concomitant]
  7. RABEPRAZOLE SODIUM [Concomitant]
  8. URSODIOL [Concomitant]
  9. LOXONIN (LOXOPROFEN SODIUM) [Concomitant]
  10. CYTOTEC [Concomitant]
  11. ZOLPIDEM TARTRATE [Concomitant]
  12. NAIXAN (NAPROXEN SODIUM) [Concomitant]

REACTIONS (9)
  - BLOOD BICARBONATE DECREASED [None]
  - CARBOHYDRATE ANTIGEN 19-9 INCREASED [None]
  - CARCINOEMBRYONIC ANTIGEN INCREASED [None]
  - CHOLANGITIS [None]
  - DEEP VEIN THROMBOSIS [None]
  - DYSGEUSIA [None]
  - DYSPNOEA EXERTIONAL [None]
  - PNEUMONITIS [None]
  - SHOCK [None]
